FAERS Safety Report 25107144 (Version 1)
Quarter: 2025Q1

REPORT INFORMATION
  Report Type: Spontaneous
  Country: US (occurrence: US)
  Receive Date: 20250321
  Receipt Date: 20250321
  Transmission Date: 20250409
  Serious: No
  Sender: VERTEX
  Company Number: US-VERTEX PHARMACEUTICALS-2025-004464

PATIENT

DRUGS (1)
  1. CASGEVY [Suspect]
     Active Substance: EXAGAMGLOGENE AUTOTEMCEL
     Indication: Sickle cell disease
     Route: 042

REACTIONS (1)
  - Vascular access site haemorrhage [Unknown]
